FAERS Safety Report 6633860-4 (Version None)
Quarter: 2010Q1

REPORT INFORMATION
  Report Type: 
  Country: None (occurrence: None)
  Receive Date: 20100315
  Receipt Date: 20100308
  Transmission Date: 20100710
  Serious: Yes (Other)
  Sender: FDA-Public Use
  Company Number: GB-TEVA-226627ISR

PATIENT
  Age: 81 Year
  Sex: Female

DRUGS (1)
  1. TRAMADOL HCL [Suspect]
     Indication: PAIN
     Route: 048
     Dates: start: 20091101, end: 20100101

REACTIONS (2)
  - ALOPECIA [None]
  - CONTUSION [None]
